FAERS Safety Report 8192878-3 (Version None)
Quarter: 2012Q1

REPORT INFORMATION
  Report Type: 
  Country: None (occurrence: None)
  Receive Date: 20120221
  Receipt Date: 20111106
  Transmission Date: 20120608
  Serious: No
  Sender: FDA-Public Use
  Company Number: 1000025281

PATIENT
  Age: 70 Year
  Sex: Female

DRUGS (4)
  1. VIIBRYD [Suspect]
     Indication: DEPRESSION
     Dosage: 10 MG (10 MG, 1 IN 1D),ORAL
     Route: 048
     Dates: start: 20110901, end: 20110901
  2. VIIBRYD [Suspect]
     Indication: DEPRESSION
     Dosage: 10 MG (10 MG, 1 IN 1D),ORAL
     Route: 048
     Dates: start: 20110901, end: 20111001
  3. VIIBRYD [Suspect]
     Indication: DEPRESSION
     Dosage: 10 MG (10 MG, 1 IN 1D),ORAL
     Route: 048
     Dates: start: 20111001
  4. ALCOHOL (ETHANOL) [Suspect]

REACTIONS (1)
  - ABNORMAL DREAMS [None]
